FAERS Safety Report 22102332 (Version 2)
Quarter: 2024Q1

REPORT INFORMATION
  Report Type: Spontaneous
  Country: GB (occurrence: GB)
  Receive Date: 20230316
  Receipt Date: 20240131
  Transmission Date: 20240410
  Serious: No
  Sender: FDA-Public Use
  Company Number: GB-CELLTRION INC.-2023GB005169

PATIENT

DRUGS (1)
  1. INFLIXIMAB [Suspect]
     Active Substance: INFLIXIMAB
     Indication: Juvenile idiopathic arthritis
     Dosage: 120 MG PREFILLED PEN EVERY 2 WEEKS FOR 48 WEEKS
     Route: 058
     Dates: start: 202303

REACTIONS (1)
  - Off label use [Unknown]
